FAERS Safety Report 14004459 (Version 3)
Quarter: 2018Q1

REPORT INFORMATION
  Report Type: Report from Study
  Country: BR (occurrence: BR)
  Receive Date: 20170922
  Receipt Date: 20180108
  Transmission Date: 20180508
  Serious: Yes (Other)
  Sender: FDA-Public Use
  Company Number: PHHY2017BR137701

PATIENT
  Age: 9 Year
  Sex: Male
  Weight: 40 kg

DRUGS (3)
  1. OMNITROPE [Suspect]
     Active Substance: SOMATROPIN
     Indication: GROWTH HORMONE DEFICIENCY
     Dosage: 0.3 MG, QD
     Route: 065
     Dates: start: 2015
  2. OMNITROPE [Suspect]
     Active Substance: SOMATROPIN
     Indication: GASTROINTESTINAL MUCOSAL DISORDER
     Dosage: QD
     Route: 065
  3. OMNITROPE [Suspect]
     Active Substance: SOMATROPIN
     Indication: AUTISM SPECTRUM DISORDER
     Dosage: 0.4 MG, UNK
     Route: 065

REACTIONS (6)
  - Rheumatic fever [Unknown]
  - Agitation [Unknown]
  - Pain [Recovering/Resolving]
  - Salivary gland disorder [Recovering/Resolving]
  - Off label use [Unknown]
  - Noninfective sialoadenitis [Recovering/Resolving]

NARRATIVE: CASE EVENT DATE: 201709
